FAERS Safety Report 8795310 (Version 2)
Quarter: 2015Q2

REPORT INFORMATION
  Report Type: Report from Study
  Country: US (occurrence: US)
  Receive Date: 20120918
  Receipt Date: 20150403
  Transmission Date: 20150821
  Serious: Yes (Death)
  Sender: FDA-Public Use
  Company Number: US-ROCHE-1129187

PATIENT
  Sex: Male
  Weight: 68.1 kg

DRUGS (40)
  1. IRINOTECAN [Concomitant]
     Active Substance: IRINOTECAN
     Route: 042
     Dates: start: 20080520, end: 20080520
  2. AVASTIN [Suspect]
     Active Substance: BEVACIZUMAB
     Dosage: CYCLE 5
     Route: 042
     Dates: start: 20080422, end: 20080422
  3. AVASTIN [Suspect]
     Active Substance: BEVACIZUMAB
     Route: 042
     Dates: start: 20080715, end: 20080715
  4. AVASTIN [Suspect]
     Active Substance: BEVACIZUMAB
     Route: 042
     Dates: start: 20080812, end: 20080812
  5. IRINOTECAN [Concomitant]
     Active Substance: IRINOTECAN
     Route: 042
     Dates: start: 20080422, end: 20080422
  6. DEXAMETHASONE. [Concomitant]
     Active Substance: DEXAMETHASONE
     Dosage: RECEIVED SINGLE DOSE ON 04/JAN/2008, 15/JAN/2008, 29/JAN/2008, 12/FEB/2008, 26/FEB/2008, 25/MAR/2008
     Route: 042
  7. AVASTIN [Suspect]
     Active Substance: BEVACIZUMAB
     Indication: BRAIN NEOPLASM MALIGNANT
     Dosage: IN 100 ML NORMAL SALINE (CYCLE 1)
     Route: 042
     Dates: start: 20080104, end: 20080104
  8. IRINOTECAN [Concomitant]
     Active Substance: IRINOTECAN
     Route: 042
     Dates: start: 20080311, end: 20080311
  9. PEPCID [Concomitant]
     Active Substance: FAMOTIDINE
  10. AVASTIN [Suspect]
     Active Substance: BEVACIZUMAB
     Indication: GLIOBLASTOMA MULTIFORME
     Route: 041
  11. AVASTIN [Suspect]
     Active Substance: BEVACIZUMAB
     Dosage: (CYCLE 2)
     Route: 042
     Dates: start: 20080129, end: 20080129
  12. AVASTIN [Suspect]
     Active Substance: BEVACIZUMAB
     Dosage: CYCLE 4
     Route: 042
     Dates: start: 20080325, end: 20080325
  13. IRINOTECAN [Concomitant]
     Active Substance: IRINOTECAN
     Route: 042
     Dates: start: 20080115, end: 20080115
  14. IRINOTECAN [Concomitant]
     Active Substance: IRINOTECAN
     Route: 042
     Dates: start: 20080129, end: 20080129
  15. IRINOTECAN [Concomitant]
     Active Substance: IRINOTECAN
     Route: 042
     Dates: start: 20080226, end: 20080226
  16. IRINOTECAN [Concomitant]
     Active Substance: IRINOTECAN
     Route: 042
     Dates: start: 20080506, end: 20080506
  17. ONDANSETRON [Concomitant]
     Active Substance: ONDANSETRON
     Dosage: RECEIVED SINGLE DOSE ON 04/JAN/2008, 15/JAN/2008, 29/JAN/2008, 12/FEB/2008, 26/FEB/2008, 11/MAR/2008
     Route: 042
  18. ATROPINE [Concomitant]
     Active Substance: ATROPINE
     Dosage: RECEIVED SINGLE DOSE ON 22/APR/2008, 20/MAY/2008
     Route: 058
  19. PERCOCET [Concomitant]
     Active Substance: ACETAMINOPHEN\OXYCODONE HYDROCHLORIDE
     Indication: PAIN
  20. AVASTIN [Suspect]
     Active Substance: BEVACIZUMAB
     Dosage: CYCLE 6
     Route: 042
     Dates: start: 20080603, end: 20080603
  21. AVASTIN [Suspect]
     Active Substance: BEVACIZUMAB
     Dosage: CYCLE 6
     Route: 042
     Dates: start: 20080617, end: 20080617
  22. AVASTIN [Suspect]
     Active Substance: BEVACIZUMAB
     Route: 042
     Dates: start: 20080729, end: 20080729
  23. IRINOTECAN [Concomitant]
     Active Substance: IRINOTECAN
     Route: 042
     Dates: start: 20080104, end: 20080104
  24. CARBOPLATIN. [Concomitant]
     Active Substance: CARBOPLATIN
     Dosage: RECEIVED SINGLE DOSE ON 17/JUN/2008, 15/JUL/2008,
     Route: 065
  25. AVASTIN [Suspect]
     Active Substance: BEVACIZUMAB
     Dosage: CYCLE 7
     Route: 042
     Dates: start: 20080701, end: 20080701
  26. CARBOPLATIN. [Concomitant]
     Active Substance: CARBOPLATIN
     Dosage: RECEIVED SINGLE DOSE ON 12/AUG/2008
     Route: 065
  27. REGULAR INSULIN [Concomitant]
     Active Substance: INSULIN NOS
     Dosage: 8 UNITS, RECEIVED ON 04/JAN/2008
     Route: 058
  28. AVASTIN [Suspect]
     Active Substance: BEVACIZUMAB
     Dosage: IN 100 ML NORMAL SALINE (CYCLE 3)
     Route: 042
     Dates: start: 20080226, end: 20080226
  29. AVASTIN [Suspect]
     Active Substance: BEVACIZUMAB
     Dosage: CYCLE 4
     Route: 042
     Dates: start: 20080408, end: 20080408
  30. DECADRON [Concomitant]
     Active Substance: DEXAMETHASONE
     Dosage: EVERY DAY
     Route: 065
  31. IRINOTECAN [Concomitant]
     Active Substance: IRINOTECAN
     Route: 042
     Dates: start: 20080212, end: 20080212
  32. IRINOTECAN [Concomitant]
     Active Substance: IRINOTECAN
     Route: 042
     Dates: start: 20080325, end: 20080325
  33. IRINOTECAN [Concomitant]
     Active Substance: IRINOTECAN
     Route: 042
     Dates: start: 20080408, end: 20080408
  34. AVASTIN [Suspect]
     Active Substance: BEVACIZUMAB
     Dosage: IN 100 ML NORMAL SALINE, (CYCLE 1)
     Route: 042
     Dates: start: 20080115, end: 20080115
  35. AVASTIN [Suspect]
     Active Substance: BEVACIZUMAB
     Dosage: (CYCLE 2)
     Route: 042
     Dates: start: 20080212, end: 20080212
  36. AVASTIN [Suspect]
     Active Substance: BEVACIZUMAB
     Dosage: IN 100 ML NORMAL SALINE (CYCLE 3)
     Route: 042
     Dates: start: 20080311, end: 20080311
  37. AVASTIN [Suspect]
     Active Substance: BEVACIZUMAB
     Dosage: CYCLE 5
     Route: 042
     Dates: start: 20080506, end: 20080506
  38. AVASTIN [Suspect]
     Active Substance: BEVACIZUMAB
     Dosage: CYCLE 6
     Route: 042
     Dates: start: 20080520, end: 20080520
  39. KEPPRA [Concomitant]
     Active Substance: LEVETIRACETAM
     Route: 065
  40. HEPARIN [Concomitant]
     Active Substance: HEPARIN SODIUM
     Dosage: 100 U/CC
     Route: 065

REACTIONS (12)
  - Nausea [Unknown]
  - Disease progression [Unknown]
  - Death [Fatal]
  - Abdominal pain [Unknown]
  - Protein urine present [Unknown]
  - Off label use [Unknown]
  - Nuclear magnetic resonance imaging brain abnormal [Unknown]
  - Platelet count decreased [Unknown]
  - Seizure [Unknown]
  - Diarrhoea [Unknown]
  - Musculoskeletal pain [Unknown]
  - Myalgia [Unknown]
